FAERS Safety Report 5141892-0 (Version None)
Quarter: 2006Q4

REPORT INFORMATION
  Report Type: 
  Country: None (occurrence: None)
  Receive Date: 20061025
  Receipt Date: 20061016
  Transmission Date: 20070319
  Serious: Yes (Other)
  Sender: FDA-Public Use
  Company Number: 2006-148512-NL

PATIENT
  Age: 30 Year
  Sex: Female

DRUGS (5)
  1. FOLLITROPIN BETA [Suspect]
     Dosage: DF
  2. GANIRELIX ACETATE INJECTION [Suspect]
     Dosage: 0.25 MG
  3. CHORIONIC GONADOTROPIN [Suspect]
  4. PROGESTERONE [Suspect]
     Dosage: 200 MG TID VAGINAL
     Route: 067
  5. MENOTROPINS [Suspect]

REACTIONS (1)
  - ECTOPIC PREGNANCY [None]
